FAERS Safety Report 6542898-7 (Version None)
Quarter: 2010Q1

REPORT INFORMATION
  Report Type: 
  Country: None (occurrence: None)
  Receive Date: 20100120
  Receipt Date: 20100111
  Transmission Date: 20100710
  Serious: Yes (Other)
  Sender: FDA-Public Use
  Company Number: US-CELGENEUS-163-21880-10010629

PATIENT
  Sex: Male

DRUGS (5)
  1. REVLIMID [Suspect]
     Indication: AMYLOIDOSIS
     Route: 048
     Dates: start: 20091201
  2. PREDNISOLONE [Concomitant]
     Indication: DRY EYE
     Route: 065
  3. PREDNISOLONE [Concomitant]
  4. VIGAMOX [Concomitant]
     Indication: DRY EYE
     Route: 065
  5. VIGAMOX [Concomitant]

REACTIONS (2)
  - DRY EYE [None]
  - ULCERATIVE KERATITIS [None]
